FAERS Safety Report 9731078 (Version 2)
Quarter: 2016Q1

REPORT INFORMATION
  Report Type: Report from Study
  Country: US (occurrence: US)
  Receive Date: 20131203
  Receipt Date: 20160215
  Transmission Date: 20160526
  Serious: Yes (Hospitalization)
  Sender: FDA-Public Use
  Company Number: US-BAYER-2013-144417

PATIENT
  Age: 15 Year
  Sex: Male
  Weight: 45.4 kg

DRUGS (5)
  1. TOPOTECAN [Suspect]
     Active Substance: TOPOTECAN\TOPOTECAN HYDROCHLORIDE
     Dosage: 2 MG DAYS 1-5; 8-12
     Route: 048
     Dates: start: 20131029, end: 20131109
  2. SORAFENIB (RAF KINASE INHIBITOR) [Suspect]
     Active Substance: SORAFENIB
     Indication: EWING^S SARCOMA
     Dosage: 200 MG QAM; 250 MG QPM DY 2-28
     Dates: start: 20131030, end: 20131112
  3. TRIMETHOPRIM COMP. [Concomitant]
     Dosage: BID FR/SA/SUN
  4. DRONABINOL. [Concomitant]
     Active Substance: DRONABINOL
     Dosage: 2.5 MG, BID
  5. ONDANSETRON [Concomitant]
     Active Substance: ONDANSETRON
     Dosage: 8 MG, PRN Q8H

REACTIONS (4)
  - Syncope [None]
  - Anaemia [Recovered/Resolved]
  - Neutrophil count decreased [Recovered/Resolved]
  - Platelet count decreased [Recovered/Resolved]

NARRATIVE: CASE EVENT DATE: 201311
